FAERS Safety Report 8264304-7 (Version None)
Quarter: 2012Q2

REPORT INFORMATION
  Report Type: 
  Country: None (occurrence: None)
  Receive Date: 20120403
  Receipt Date: 20120320
  Transmission Date: 20120825
  Serious: Yes (Hospitalization)
  Sender: FDA-Public Use
  Company Number: IMP_05808_2012

PATIENT
  Age: 38 Year
  Sex: Female

DRUGS (4)
  1. MINOCYCLINE HCL [Suspect]
     Indication: ACNE
     Dosage: (DF)
  2. HYDROCHLOROTHIAZIDE [Concomitant]
  3. QUINAPRIL [Concomitant]
  4. MONTELUKAST [Concomitant]

REACTIONS (13)
  - MYOCARDITIS [None]
  - THYROXINE FREE INCREASED [None]
  - TRI-IODOTHYRONINE FREE INCREASED [None]
  - HAEMATURIA [None]
  - TYPE 2 DIABETES MELLITUS [None]
  - BLOOD CREATININE INCREASED [None]
  - ALANINE AMINOTRANSFERASE INCREASED [None]
  - ASPARTATE AMINOTRANSFERASE INCREASED [None]
  - BLOOD THYROID STIMULATING HORMONE DECREASED [None]
  - DRUG RASH WITH EOSINOPHILIA AND SYSTEMIC SYMPTOMS [None]
  - BLOOD UREA INCREASED [None]
  - MYOGLOBIN BLOOD INCREASED [None]
  - CARDIAC FAILURE [None]
